FAERS Safety Report 18948011 (Version 2)
Quarter: 2021Q1

REPORT INFORMATION
  Report Type: Report from Study
  Country: GB (occurrence: GB)
  Receive Date: 20210226
  Receipt Date: 20210315
  Transmission Date: 20210420
  Serious: Yes (Other)
  Sender: FDA-Public Use
  Company Number: NVSC2020GB025909

PATIENT
  Age: 59 Year
  Sex: Female
  Weight: 97 kg

DRUGS (17)
  1. FOLIC ACID. [Concomitant]
     Active Substance: FOLIC ACID
     Indication: RHEUMATOID ARTHRITIS
     Dosage: 5 MG, QD (EXCEPT THE DAY OF METHOTREXATE)
     Route: 048
     Dates: start: 20081024
  2. IBUPROFEN. [Concomitant]
     Active Substance: IBUPROFEN
     Indication: GENERAL PHYSICAL HEALTH DETERIORATION
     Dosage: 400 MG (AS REQUIRED)
     Route: 048
     Dates: start: 200601
  3. SIMVASTATIN. [Concomitant]
     Active Substance: SIMVASTATIN
     Indication: GENERAL PHYSICAL HEALTH DETERIORATION
     Dosage: 40 MG, QD
     Route: 048
     Dates: start: 20070629
  4. DAPAGLIFLOZIN. [Concomitant]
     Active Substance: DAPAGLIFLOZIN
     Indication: TYPE 1 DIABETES MELLITUS
     Dosage: 10 MG, QD
     Route: 048
     Dates: start: 20140620
  5. HYLO?FORTE [Concomitant]
     Active Substance: HYALURONATE SODIUM
     Indication: GENERAL PHYSICAL HEALTH DETERIORATION
     Dosage: 1 DRP, BID
     Route: 065
     Dates: start: 20150616
  6. ENBREL [Concomitant]
     Active Substance: ETANERCEPT
     Indication: RHEUMATOID ARTHRITIS
     Dosage: UNK
     Route: 058
     Dates: start: 20170901, end: 201810
  7. ERELZI [Suspect]
     Active Substance: ETANERCEPT-SZZS
     Dosage: 50 MG, QW
     Route: 030
     Dates: start: 20200328, end: 202012
  8. VISCOTEARS [Concomitant]
     Active Substance: CARBOMER
     Indication: GENERAL PHYSICAL HEALTH DETERIORATION
     Dosage: 1 DRP, BID
     Route: 065
     Dates: start: 20150622
  9. OMEPRAZOLE. [Concomitant]
     Active Substance: OMEPRAZOLE
     Indication: GENERAL PHYSICAL HEALTH DETERIORATION
     Dosage: 20 MG, QD
     Route: 048
     Dates: start: 20120131
  10. TRESIBA [Concomitant]
     Active Substance: INSULIN DEGLUDEC
     Indication: TYPE 1 DIABETES MELLITUS
     Dosage: UNK, QD
     Route: 058
     Dates: start: 20090813
  11. PARACETAMOL [Concomitant]
     Active Substance: ACETAMINOPHEN
     Indication: GENERAL PHYSICAL HEALTH DETERIORATION
     Dosage: 1 G (AS REQUIRED)
     Route: 048
     Dates: start: 200601
  12. ERELZI [Suspect]
     Active Substance: ETANERCEPT-SZZS
     Indication: RHEUMATOID ARTHRITIS
     Dosage: 50 MG, QW
     Route: 058
     Dates: start: 20181112, end: 20190807
  13. ERELZI [Suspect]
     Active Substance: ETANERCEPT-SZZS
     Dosage: 50 MG, QW
     Route: 058
     Dates: start: 20190904, end: 20200307
  14. METHOTREXATE. [Concomitant]
     Active Substance: METHOTREXATE
     Indication: RHEUMATOID ARTHRITIS
     Dosage: 12.5 MG, QW
     Route: 048
     Dates: start: 20081024
  15. XAILIN [Concomitant]
     Indication: GENERAL PHYSICAL HEALTH DETERIORATION
     Dosage: 1 DRP, BID
     Route: 065
     Dates: start: 201801
  16. SULFASALAZINE. [Concomitant]
     Active Substance: SULFASALAZINE
     Indication: RHEUMATOID ARTHRITIS
     Dosage: UNK
     Route: 048
     Dates: start: 200710, end: 200802
  17. LEFLUNOMIDE. [Concomitant]
     Active Substance: LEFLUNOMIDE
     Indication: RHEUMATOID ARTHRITIS
     Dosage: UNK
     Route: 048
     Dates: start: 200801, end: 200802

REACTIONS (13)
  - Rheumatoid nodule [Recovered/Resolved]
  - Tuberculosis [Not Recovered/Not Resolved]
  - Injection site bruising [Unknown]
  - Burning sensation [Unknown]
  - Rheumatoid arthritis [Recovered/Resolved]
  - Drug ineffective [Recovered/Resolved]
  - Gait disturbance [Unknown]
  - Injection site erythema [Unknown]
  - Inflammatory marker increased [Not Recovered/Not Resolved]
  - Injection site pain [Unknown]
  - Hypersensitivity [Recovered/Resolved]
  - Incorrect route of product administration [Recovered/Resolved]
  - Mycobacterium tuberculosis complex test positive [Not Recovered/Not Resolved]

NARRATIVE: CASE EVENT DATE: 20190821
